FAERS Safety Report 9899571 (Version 2)
Quarter: 2014Q2

REPORT INFORMATION
  Report Type: Spontaneous
  Country: IT (occurrence: IT)
  Receive Date: 20140214
  Receipt Date: 20140410
  Transmission Date: 20141212
  Serious: Yes (Other)
  Sender: FDA-Public Use
  Company Number: IT-PFIZER INC-2014040741

PATIENT
  Age: 14 Year
  Sex: Male

DRUGS (4)
  1. XANAX [Suspect]
     Indication: ANXIETY
     Dosage: 10 GTT, DAILY
     Route: 048
     Dates: start: 20131212, end: 20131214
  2. RITALIN [Suspect]
     Indication: ATTENTION DEFICIT/HYPERACTIVITY DISORDER
     Dosage: 25 MG, DAILY
     Route: 048
     Dates: start: 20131121
  3. LITHIUM CARBONATE [Concomitant]
     Dosage: 1200 MG, UNK
     Route: 048
     Dates: start: 20110211, end: 20131218
  4. ATOMOXETINE HYDROCHLORIDE [Concomitant]
     Dosage: 60 MG, UNK
     Route: 048
     Dates: start: 20110211, end: 20131218

REACTIONS (2)
  - Mania [Recovered/Resolved]
  - Paradoxical drug reaction [Recovered/Resolved]
